FAERS Safety Report 21570527 (Version 3)
Quarter: 2023Q4

REPORT INFORMATION
  Report Type: Spontaneous
  Country: US (occurrence: US)
  Receive Date: 20221109
  Receipt Date: 20231229
  Transmission Date: 20240110
  Serious: Yes (Death, Hospitalization, Other)
  Sender: FDA-Public Use
  Company Number: US-PFIZER INC-PV202200096064

PATIENT
  Age: 95 Year
  Sex: Female

DRUGS (1)
  1. ESTRING [Suspect]
     Active Substance: ESTRADIOL
     Indication: Urinary tract infection
     Dosage: UNK (ONCE EVERY 3 MONTHS)
     Dates: start: 20210325

REACTIONS (3)
  - Death [Fatal]
  - Urinary tract infection [Unknown]
  - Blindness [Unknown]

NARRATIVE: CASE EVENT DATE: 20231220
